FAERS Safety Report 6148541-3 (Version None)
Quarter: 2009Q2

REPORT INFORMATION
  Report Type: 
  Country: None (occurrence: None)
  Receive Date: 20090408
  Receipt Date: 20090401
  Transmission Date: 20091009
  Serious: Yes (Death, Hospitalization)
  Sender: FDA-Public Use
  Company Number: ES-CELGENEUS-144-21880-09031687

PATIENT
  Age: 88 Year
  Sex: Male
  Weight: 70 kg

DRUGS (11)
  1. REVLIMID [Suspect]
     Indication: MULTIPLE MYELOMA
     Route: 048
     Dates: start: 20090225, end: 20090322
  2. DIGOXIN [Concomitant]
     Indication: TACHYCARDIA
     Route: 051
     Dates: start: 20090327, end: 20090327
  3. DIGOXIN [Concomitant]
     Route: 051
     Dates: start: 20090328, end: 20090331
  4. MORPHINE [Concomitant]
     Route: 051
     Dates: start: 20090327, end: 20090331
  5. ATROVENT [Concomitant]
     Indication: PROPHYLAXIS
     Route: 055
     Dates: start: 20090323, end: 20090330
  6. LEVOFLOXACIN [Concomitant]
     Indication: PROPHYLAXIS
     Route: 051
     Dates: start: 20090322, end: 20090326
  7. LEVOFLOXACIN [Concomitant]
     Route: 051
     Dates: start: 20090327, end: 20090331
  8. ENOXAPARIN SODIUM [Concomitant]
     Route: 058
     Dates: start: 20090323, end: 20090326
  9. ENOXAPARIN SODIUM [Concomitant]
     Route: 058
     Dates: start: 20090327, end: 20090330
  10. VENTOLIN [Concomitant]
     Indication: PROPHYLAXIS
     Route: 055
     Dates: start: 20090323, end: 20090330
  11. ACYCLOVIR [Concomitant]
     Indication: HERPES ZOSTER
     Route: 003
     Dates: start: 20090324, end: 20090331

REACTIONS (4)
  - ANAEMIA [None]
  - DYSPNOEA [None]
  - HYPOCALCAEMIA [None]
  - RENAL FAILURE [None]
